FAERS Safety Report 6869180-2 (Version None)
Quarter: 2010Q3

REPORT INFORMATION
  Report Type: 
  Country: None (occurrence: None)
  Receive Date: 20100722
  Receipt Date: 20100715
  Transmission Date: 20110219
  Serious: Yes (Hospitalization)
  Sender: FDA-Public Use
  Company Number: US-AMGEN-KDC422584

PATIENT
  Sex: Female

DRUGS (6)
  1. PANITUMUMAB [Suspect]
     Indication: SQUAMOUS CELL CARCINOMA
     Route: 042
     Dates: start: 20100415
  2. CISPLATIN [Suspect]
     Route: 042
     Dates: start: 20100415
  3. DOCETAXEL [Suspect]
     Route: 042
     Dates: start: 20100415
  4. DECADRON [Concomitant]
     Route: 050
     Dates: start: 20100415
  5. LANTUS [Concomitant]
  6. BENAZEPRIL HYDROCHLORIDE [Concomitant]

REACTIONS (3)
  - NAUSEA [None]
  - SEPSIS [None]
  - VOMITING [None]
